FAERS Safety Report 7404324 (Version 3)
Quarter: 2013Q3

REPORT INFORMATION
  Report Type: Spontaneous
  Country: JP (occurrence: JP)
  Receive Date: 20100528
  Receipt Date: 20130808
  Transmission Date: 20140515
  Serious: Yes (Death, Hospitalization, Other)
  Sender: FDA-Public Use
  Company Number: PHHY2010JP23540

PATIENT
  Age: 50 Year
  Sex: Female

DRUGS (7)
  1. NEORAL [Suspect]
     Indication: PUSTULAR PSORIASIS
     Dosage: 100 MG, DAILY
     Route: 048
     Dates: start: 20090810, end: 20090812
  2. NEORAL [Suspect]
     Dosage: 100 MG, DAILY
     Route: 048
     Dates: start: 20090909, end: 20090924
  3. NEORAL [Suspect]
     Dosage: 50 MG, DAILY
     Route: 048
     Dates: start: 20090925, end: 20091012
  4. CORTICOSTEROIDS [Suspect]
  5. PREDNISOLONE [Concomitant]
     Indication: ACUTE GENERALISED EXANTHEMATOUS PUSTULOSIS
     Dosage: 40 MG, UNK
  6. PREDNISOLONE [Concomitant]
     Dosage: 12.5 MG, UNK
  7. PREDNISOLONE [Concomitant]
     Dosage: 20 MG, UNK

REACTIONS (10)
  - Cardiac failure [Fatal]
  - Hypotension [Fatal]
  - Cytomegalovirus enterocolitis [Unknown]
  - Large intestine perforation [Unknown]
  - Abdominal pain [Unknown]
  - Computerised tomogram abdomen abnormal [Unknown]
  - Gastrointestinal perforation [Unknown]
  - Renal failure chronic [Unknown]
  - Oedema [Unknown]
  - Renal failure acute [Unknown]
